FAERS Safety Report 6066456-6 (Version None)
Quarter: 2009Q1

REPORT INFORMATION
  Report Type: 
  Country: None (occurrence: None)
  Receive Date: 20090205
  Receipt Date: 20090126
  Transmission Date: 20090719
  Serious: Yes (Hospitalization)
  Sender: FDA-Public Use
  Company Number: US-BIOGENIDEC-2008BI031924

PATIENT
  Age: 54 Year
  Sex: Male
  Weight: 112 kg

DRUGS (1)
  1. TYSABRI [Suspect]
     Indication: MULTIPLE SCLEROSIS
     Route: 042
     Dates: start: 20080709, end: 20081027

REACTIONS (18)
  - ABDOMINAL DISCOMFORT [None]
  - CHILLS [None]
  - CONFUSIONAL STATE [None]
  - DYSPNOEA [None]
  - FATIGUE [None]
  - GASTROOESOPHAGEAL REFLUX DISEASE [None]
  - GLIOSIS [None]
  - HEART RATE INCREASED [None]
  - HERNIA [None]
  - HYPERHIDROSIS [None]
  - HYPERTENSION [None]
  - MULTIPLE SCLEROSIS RELAPSE [None]
  - PNEUMONIA [None]
  - POLLAKIURIA [None]
  - TACHYCARDIA [None]
  - TREMOR [None]
  - TUNNEL VISION [None]
  - UROSEPSIS [None]
